FAERS Safety Report 4660364-0 (Version None)
Quarter: 2005Q2

REPORT INFORMATION
  Report Type: 
  Country: None (occurrence: None)
  Receive Date: 20050511
  Receipt Date: 20050511
  Transmission Date: 20051028
  Serious: Yes (Hospitalization)
  Sender: FDA-Public Use
  Company Number: None

PATIENT
  Age: 78 Year
  Sex: Female

DRUGS (8)
  1. RITUXIMAB [Suspect]
     Indication: NON-HODGKIN'S LYMPHOMA
     Dosage: X3 DOSES
     Dates: end: 20041020
  2. SPIRIVA [Concomitant]
  3. FORADIL [Concomitant]
  4. ALBUTEROL [Concomitant]
  5. LISINOPRIL AND HYDROCHLOROTHIAZIDE [Concomitant]
  6. CALCIUM GLUCONATE [Concomitant]
  7. FOSAMAX [Concomitant]
  8. K GLUCONATE [Concomitant]

REACTIONS (3)
  - CARDIAC FAILURE CHRONIC [None]
  - DYSPNOEA [None]
  - HYPERTENSION [None]
